FAERS Safety Report 8168086-9 (Version None)
Quarter: 2012Q1

REPORT INFORMATION
  Report Type: 
  Country: None (occurrence: None)
  Receive Date: 20120227
  Receipt Date: 20120216
  Transmission Date: 20120608
  Serious: Yes (Disabling)
  Sender: FDA-Public Use
  Company Number: PHHY2012GB003565

PATIENT
  Sex: Male

DRUGS (9)
  1. MADOPAR [Concomitant]
     Dosage: 250 MG, 5 IN 1 D
  2. ENTACAPONE [Concomitant]
     Dosage: 200 MG, 6 IN 1 D
  3. TEMAZEPAM [Concomitant]
     Dosage: AT NIGHT
  4. STALEVO 100 [Suspect]
     Indication: PARKINSON'S DISEASE
     Dosage: 200 MG,4 TIMES A DAY AND AT NIGHT
     Route: 048
     Dates: start: 20110413, end: 20110512
  5. MADOPAR [Concomitant]
     Dosage: UNK UKN, UNK
  6. PRAMIPEXOLE DIHYDROCHLORIDE [Concomitant]
     Dosage: 3.1 MG, AT NIGHT
  7. MIRTAZAPINE [Concomitant]
     Dosage: 30 MG, DAILY
  8. SINEMET CR [Concomitant]
     Dosage: AT NIGHT
  9. MADOPAR DISPERSIBLE [Concomitant]
     Dosage: 62.5 MG, AS NEEDED

REACTIONS (3)
  - ARTHRALGIA [None]
  - OEDEMA [None]
  - DRUG INEFFECTIVE [None]
